FAERS Safety Report 9506212 (Version 1)
Quarter: 2013Q1

REPORT INFORMATION
  Report Type: Spontaneous
  Country: US (occurrence: None)
  Receive Date: 20130301
  Receipt Date: 20130301
  Transmission Date: 20140127
  Serious: Yes (Other)
  Sender: FDA-Public Use
  Company Number: RB-45613-2012

PATIENT
  Age: 22 Year
  Sex: Female

DRUGS (4)
  1. SUBOXONE [Suspect]
     Indication: DRUG DEPENDENCE
     Dosage: (SUBOXONE FILM; DOSING DETAILS UNKNOWN SUBLINGUAL)
     Dates: start: 201101, end: 201101
  2. BUPRENORPHINE 8 MG (NONE) [Suspect]
     Indication: DRUG DEPENDENCE
     Dosage: 24 MG SUBLINGUAL
     Dates: start: 201101, end: 201201
  3. PRENATAL [Concomitant]
  4. SUBOXONE [Suspect]
     Indication: DRUG DEPENDENCE
     Dosage: DOSING DETAILS UNKNOWN UNKNOWN

REACTIONS (3)
  - Premature delivery [None]
  - Substance abuse [None]
  - Maternal exposure during pregnancy [None]
